FAERS Safety Report 9257290 (Version 1)
Quarter: 2013Q1

REPORT INFORMATION
  Report Type: Spontaneous
  Country: US (occurrence: None)
  Receive Date: 20121212
  Receipt Date: 20121212
  Transmission Date: 20140127
  Serious: No
  Sender: FDA-Public Use
  Company Number: 1209USA007032

PATIENT
  Age: 59 Year
  Sex: Female
  Weight: 52.6 kg

DRUGS (3)
  1. PEG-INTRON (PEGINTERFERON ALFA-2B) POWDER FOR INJECTION, 150MICROGRAM [Suspect]
     Indication: HEPATITIS C
     Dates: start: 20120825
  2. REBETOL (RIBAVIRIN) CAPSULE [Suspect]
     Dates: start: 20120825
  3. VICTRELIS (BOCEPREVIR) CAPSULE [Suspect]
     Indication: HEPATITIS C
     Dates: start: 20120922

REACTIONS (3)
  - Weight decreased [None]
  - Headache [None]
  - Nausea [None]
